FAERS Safety Report 23580827 (Version 2)
Quarter: 2024Q1

REPORT INFORMATION
  Report Type: Report from Study
  Country: IT (occurrence: IT)
  Receive Date: 20240229
  Receipt Date: 20240304
  Transmission Date: 20240410
  Serious: Yes (Hospitalization)
  Sender: FDA-Public Use
  Company Number: None

PATIENT
  Age: 41 Year
  Sex: Female

DRUGS (5)
  1. PACLITAXEL [Suspect]
     Active Substance: PACLITAXEL
     Indication: HER2 positive breast cancer
     Dosage: 125 MILLIGRAM, Q3W (START OF THERAPY)
     Route: 042
     Dates: start: 20231027, end: 20231027
  2. PACLITAXEL [Suspect]
     Active Substance: PACLITAXEL
     Dosage: 125 MILLIGRAM, Q3W (CYCLE II)
     Route: 042
     Dates: start: 20231117, end: 20231201
  3. PHESGO [Suspect]
     Active Substance: HYALURONIDASE-ZZXF\PERTUZUMAB\TRASTUZUMAB
     Indication: HER2 positive breast cancer
     Dosage: 600 MILLIGRAM, QW (START OF THERAPY)
     Route: 058
     Dates: start: 20231027, end: 20231027
  4. PHESGO [Suspect]
     Active Substance: HYALURONIDASE-ZZXF\PERTUZUMAB\TRASTUZUMAB
     Dosage: 600 MILLIGRAM, QW (WEEK 4)
     Route: 058
     Dates: start: 20231117, end: 20231117
  5. PHESGO [Suspect]
     Active Substance: HYALURONIDASE-ZZXF\PERTUZUMAB\TRASTUZUMAB
     Dosage: 600 MILLIGRAM, QW (WEEK 6)
     Route: 058
     Dates: start: 20231201, end: 20231201

REACTIONS (7)
  - Terminal ileitis [Recovered/Resolved]
  - Paraesthesia [Recovered/Resolved]
  - Stomatitis [Recovered/Resolved]
  - Vomiting [Recovered/Resolved]
  - Nausea [Recovered/Resolved]
  - Diarrhoea [Recovered/Resolved]
  - Off label use [Recovering/Resolving]

NARRATIVE: CASE EVENT DATE: 20231117
